FAERS Safety Report 9730269 (Version 2)
Quarter: 2013Q4

REPORT INFORMATION
  Report Type: Report from Study
  Country: US (occurrence: US)
  Receive Date: 20131202
  Receipt Date: 20131202
  Transmission Date: 20140711
  Serious: Yes (Other)
  Sender: FDA-Public Use
  Company Number: US-BAYER-2013-115725

PATIENT
  Age: 78 Year
  Sex: Male

DRUGS (3)
  1. NEXAVAR [Suspect]
     Indication: HEPATIC CANCER
     Dosage: 400 MG, BID
     Route: 048
     Dates: start: 201308
  2. ASPIRIN [ACETYLSALICYLIC ACID] [Concomitant]
  3. PLAVIX [Concomitant]

REACTIONS (4)
  - Platelet count decreased [None]
  - Epistaxis [None]
  - Pruritus [None]
  - Hepatic cancer [None]
